FAERS Safety Report 8790473 (Version 1)
Quarter: 2012Q4

REPORT INFORMATION
  Report Type: 
  Country: US (occurrence: None)
  Receive Date: 20120905
  Receipt Date: 20120905
  Transmission Date: 20130627
  Serious: Yes (Other)
  Sender: FDA-Public Use
  Company Number: 2012AP002651

PATIENT
  Sex: Female

DRUGS (2)
  1. ALENDRONATE SODIUM TABLETS [Suspect]
     Indication: OSTEOPOROSIS
     Dates: end: 2010
  2. ALENDRONATE SODIUM TABLETS [Suspect]

REACTIONS (3)
  - Femur fracture [None]
  - Multiple injuries [None]
  - Bone disorder [None]
